FAERS Safety Report 6079582-2 (Version None)
Quarter: 2009Q1

REPORT INFORMATION
  Report Type: 
  Country: None (occurrence: None)
  Receive Date: 20090121
  Receipt Date: 20080313
  Transmission Date: 20090719
  Serious: Yes (Hospitalization, Other)
  Sender: FDA-Public Use
  Company Number: HQWYE104526OCT04

PATIENT
  Age: 52 Year

DRUGS (6)
  1. PREMPRO [Suspect]
  2. COMBIPATCH [Suspect]
  3. CYCRIN [Suspect]
  4. ESTRACE [Suspect]
  5. ESTRATEST [Suspect]
  6. MEDROXYPROGESTERONE [Suspect]

REACTIONS (1)
  - BREAST CANCER [None]
